FAERS Safety Report 5807363-0 (Version None)
Quarter: 2008Q3

REPORT INFORMATION
  Report Type: 
  Country: None (occurrence: None)
  Receive Date: 20080711
  Receipt Date: 20080707
  Transmission Date: 20090109
  Serious: Yes (Other)
  Sender: FDA-Public Use
  Company Number: GB-TEVA-173974ISR

PATIENT
  Age: 50 Year
  Sex: Female

DRUGS (3)
  1. LEVOTHYROXINE SODIUM [Suspect]
  2. EPIRUBICIN [Interacting]
     Indication: BREAST CANCER
  3. PEGFILGRASTIM [Interacting]
     Indication: BREAST CANCER

REACTIONS (9)
  - AGITATION [None]
  - BLOOD THYROID STIMULATING HORMONE INCREASED [None]
  - BURNING SENSATION [None]
  - DRUG INTERACTION [None]
  - EMOTIONAL DISTRESS [None]
  - FORMICATION [None]
  - HEART RATE INCREASED [None]
  - INSOMNIA [None]
  - SWELLING FACE [None]
